FAERS Safety Report 15752538 (Version 1)
Quarter: 2018Q4

REPORT INFORMATION
  Report Type: Spontaneous
  Country: ES (occurrence: ES)
  Receive Date: 20181221
  Receipt Date: 20181221
  Transmission Date: 20190205
  Serious: Yes (Other)
  Sender: FDA-Public Use
  Company Number: ES-009507513-1812ESP008694

PATIENT
  Age: 32 Year
  Sex: Female

DRUGS (2)
  1. IBUPROFEN. [Concomitant]
     Active Substance: IBUPROFEN
     Indication: HEADACHE
  2. NUVARING [Suspect]
     Active Substance: ETHINYL ESTRADIOL\ETONOGESTREL
     Indication: CONTRACEPTION
     Dosage: 1 DOSAGE FORM, UNK
     Route: 067
     Dates: start: 2016

REACTIONS (4)
  - Vulvovaginal candidiasis [Unknown]
  - Vulvovaginal discomfort [Unknown]
  - Device breakage [Recovered/Resolved]
  - Bronchitis bacterial [Recovered/Resolved]

NARRATIVE: CASE EVENT DATE: 201811
